FAERS Safety Report 4296649-X (Version None)
Quarter: 2004Q1

REPORT INFORMATION
  Report Type: 
  Country: None (occurrence: None)
  Receive Date: 20040126
  Receipt Date: 20030924
  Transmission Date: 20041129
  Serious: No
  Sender: FDA-Public Use
  Company Number: USA030946665

PATIENT
  Age: 36 Year
  Sex: Male
  Weight: 140 kg

DRUGS (6)
  1. STRATTERA [Suspect]
     Dosage: 160 MG/DAY
     Dates: start: 20030908
  2. METHADONE HCL [Concomitant]
  3. ACTIQ [Concomitant]
  4. VALIUM [Concomitant]
  5. ANDROGEL [Concomitant]
  6. DURAGESIC [Concomitant]

REACTIONS (27)
  - ABDOMINAL PAIN [None]
  - CONSTIPATION [None]
  - CRYING [None]
  - DECREASED APPETITE [None]
  - DIZZINESS [None]
  - DRY MOUTH [None]
  - DRY SKIN [None]
  - DYSPEPSIA [None]
  - DYSURIA [None]
  - FLATULENCE [None]
  - HEADACHE [None]
  - INSOMNIA [None]
  - IRRITABILITY [None]
  - MOOD SWINGS [None]
  - MUSCLE RIGIDITY [None]
  - MYALGIA [None]
  - PARAESTHESIA [None]
  - PRESCRIBED OVERDOSE [None]
  - PRODUCTIVE COUGH [None]
  - PSYCHOMOTOR HYPERACTIVITY [None]
  - PYREXIA [None]
  - SINUS HEADACHE [None]
  - SOMNOLENCE [None]
  - THINKING ABNORMAL [None]
  - TREMOR [None]
  - VOMITING [None]
  - WEIGHT INCREASED [None]
